FAERS Safety Report 23096802 (Version 1)
Quarter: 2023Q4

REPORT INFORMATION
  Report Type: Spontaneous
  Country: US (occurrence: None)
  Receive Date: 20231019
  Receipt Date: 20231019
  Transmission Date: 20240110
  Serious: Yes (Death)
  Sender: FDA-Public Use
  Company Number: None

PATIENT
  Age: 85 Year
  Sex: Male

DRUGS (5)
  1. LOKELMA [Suspect]
     Active Substance: SODIUM ZIRCONIUM CYCLOSILICATE
     Dosage: FREQUENCY : DAILY;?
     Route: 048
     Dates: start: 20220630, end: 20230802
  2. AMLODIPINE [Concomitant]
     Active Substance: AMLODIPINE BESYLATE
  3. FUROSEMIDE [Concomitant]
     Active Substance: FUROSEMIDE
  4. METOPROLOL [Concomitant]
     Active Substance: METOPROLOL
  5. SIMVASTATIN [Concomitant]
     Active Substance: SIMVASTATIN

REACTIONS (1)
  - Death [None]

NARRATIVE: CASE EVENT DATE: 20230802
